FAERS Safety Report 17213902 (Version 1)
Quarter: 2019Q4

REPORT INFORMATION
  Report Type: Spontaneous
  Country: GB (occurrence: GB)
  Receive Date: 20191230
  Receipt Date: 20191230
  Transmission Date: 20200122
  Serious: Yes (Hospitalization, Other)
  Sender: FDA-Public Use
  Company Number: GB-MACLEODS PHARMACEUTICALS US LTD-MAC2019024588

PATIENT

DRUGS (2)
  1. VENLAFAXINE 37.5 MG [Suspect]
     Active Substance: VENLAFAXINE HYDROCHLORIDE
     Indication: DEPRESSION
     Dosage: 52 DOSAGE FORM, SINGLE, TABLET
     Route: 048
  2. PAROXETINE. [Interacting]
     Active Substance: PAROXETINE
     Indication: DEPRESSION
     Dosage: 12 DOSAGE FORM, SINGLE, TABLET
     Route: 048

REACTIONS (5)
  - Ventricular hypokinesia [Not Recovered/Not Resolved]
  - Left ventricular dysfunction [Recovering/Resolving]
  - Drug interaction [Unknown]
  - Overdose [Unknown]
  - Hypertension [Recovering/Resolving]
